FAERS Safety Report 6061248-6 (Version None)
Quarter: 2009Q1

REPORT INFORMATION
  Report Type: 
  Country: None (occurrence: None)
  Receive Date: 20090202
  Receipt Date: 20090122
  Transmission Date: 20090719
  Serious: Yes (Congenital Anomaly)
  Sender: FDA-Public Use
  Company Number: DE-ASTRAZENECA-2009PK00468

PATIENT

DRUGS (2)
  1. SEROQUEL [Suspect]
     Dosage: 500-600 MG DAILY
     Route: 064
  2. SERTRALINE [Concomitant]
     Route: 064
     Dates: end: 20081201

REACTIONS (3)
  - ARNOLD-CHIARI MALFORMATION [None]
  - HYDROCEPHALUS [None]
  - SPINA BIFIDA [None]
